FAERS Safety Report 4348642-6 (Version None)
Quarter: 2004Q2

REPORT INFORMATION
  Report Type: 
  Country: None (occurrence: None)
  Receive Date: 20040423
  Receipt Date: 20040409
  Transmission Date: 20050107
  Serious: Yes (Hospitalization)
  Sender: FDA-Public Use
  Company Number: 2004AP02173

PATIENT
  Age: 55 Year
  Sex: Male

DRUGS (4)
  1. IRESSA [Suspect]
     Indication: NON-SMALL CELL LUNG CANCER
     Dosage: 250 MG DAILY PO
     Route: 048
     Dates: start: 20040315, end: 20040403
  2. IRESSA [Suspect]
     Indication: NON-SMALL CELL LUNG CANCER
     Dosage: 250 MG DAILY PO
     Route: 048
     Dates: start: 20040409
  3. ACETAMINOPHEN [Concomitant]
  4. NO MATCH [Concomitant]

REACTIONS (6)
  - COMPUTERISED TOMOGRAM ABNORMAL [None]
  - COUGH [None]
  - HYPOXIA [None]
  - PLEURAL EFFUSION [None]
  - PULMONARY EMBOLISM [None]
  - PYREXIA [None]
